FAERS Safety Report 6556937-0 (Version None)
Quarter: 2010Q1

REPORT INFORMATION
  Report Type: 
  Country: None (occurrence: None)
  Receive Date: 20100128
  Receipt Date: 20100120
  Transmission Date: 20100710
  Serious: Yes (Hospitalization)
  Sender: FDA-Public Use
  Company Number: PHHY2010DE03674

PATIENT
  Sex: Male

DRUGS (5)
  1. RASILEZ [Suspect]
     Dosage: 300 MG, QD
     Route: 048
  2. FUROSEMIDE [Concomitant]
     Dosage: 80 MG, QD
  3. LORZAAR [Concomitant]
     Dosage: 50 MG, BID
     Route: 048
  4. DELIX [Concomitant]
     Dosage: 10 MG, QD
     Route: 048
  5. AMLODIPINE [Concomitant]
     Dosage: 10 MG, QD
     Route: 048

REACTIONS (1)
  - HYPERTENSIVE CRISIS [None]
